FAERS Safety Report 22928951 (Version 2)
Quarter: 2024Q1

REPORT INFORMATION
  Report Type: Spontaneous
  Country: US (occurrence: US)
  Receive Date: 20230911
  Receipt Date: 20240317
  Transmission Date: 20240410
  Serious: No
  Sender: FDA-Public Use
  Company Number: US-AMGEN-USASP2023160733

PATIENT
  Age: 55 Year
  Sex: Female

DRUGS (1)
  1. REPATHA [Suspect]
     Active Substance: EVOLOCUMAB
     Indication: Blood cholesterol increased
     Dosage: 420 MILLIGRAM/3.5 ML, QMO
     Route: 058
     Dates: start: 2023

REACTIONS (2)
  - Device difficult to use [Unknown]
  - Product preparation error [Unknown]

NARRATIVE: CASE EVENT DATE: 20230907
